FAERS Safety Report 8487355 (Version 2)
Quarter: 2014Q1

REPORT INFORMATION
  Report Type: Spontaneous
  Country: US (occurrence: US)
  Receive Date: 20120402
  Receipt Date: 20140321
  Transmission Date: 20141002
  Serious: Yes (Other)
  Sender: FDA-Public Use
  Company Number: US-GE HEALTHCARE MEDICAL DIAGNOSTICS-OSCN-PR-1203S-0054

PATIENT
  Age: 41 Year
  Sex: Male

DRUGS (3)
  1. OMNISCAN [Suspect]
     Indication: RENAL ARTERY STENOSIS
     Route: 042
     Dates: start: 20040928, end: 20040928
  2. OMNISCAN [Suspect]
     Indication: PAIN
     Route: 042
     Dates: start: 20051018, end: 20051018
  3. OMNISCAN [Suspect]
     Indication: CERVICAL SPINAL STENOSIS
     Route: 042
     Dates: start: 20051111, end: 20051111

REACTIONS (1)
  - Nephrogenic systemic fibrosis [Not Recovered/Not Resolved]
